FAERS Safety Report 6026624-6 (Version None)
Quarter: 2008Q4

REPORT INFORMATION
  Report Type: 
  Country: None (occurrence: None)
  Receive Date: 20081231
  Receipt Date: 20081219
  Transmission Date: 20090506
  Serious: Yes (Other)
  Sender: FDA-Public Use
  Company Number: 2008AL0010122

PATIENT
  Age: 50 Year
  Sex: Male

DRUGS (10)
  1. DIGOXIN [Suspect]
     Dosage: 0.25MG, PO
     Route: 048
  2. COREG [Concomitant]
  3. COUMADIN [Concomitant]
  4. PLAVIZ [Concomitant]
  5. ENALAPRIL MALEATE [Concomitant]
  6. BUMEX [Concomitant]
  7. INSPRA [Concomitant]
  8. METHOTUXALE [Concomitant]
  9. TRAMADOL HCL [Concomitant]
  10. CORDARONE [Concomitant]

REACTIONS (5)
  - DIZZINESS [None]
  - HEADACHE [None]
  - MENTAL DISORDER [None]
  - PALPITATIONS [None]
  - THERAPEUTIC AGENT TOXICITY [None]
